FAERS Safety Report 24247881 (Version 3)
Quarter: 2024Q4

REPORT INFORMATION
  Report Type: Spontaneous
  Country: SE (occurrence: SE)
  Receive Date: 20240826
  Receipt Date: 20241021
  Transmission Date: 20250114
  Serious: Yes (Other)
  Sender: AMGEN
  Company Number: SE-UCBSA-2024041011

PATIENT
  Age: 71 Year
  Sex: Female
  Weight: 60 kg

DRUGS (6)
  1. EVENITY [Suspect]
     Active Substance: ROMOSOZUMAB-AQQG
     Indication: Osteoporosis
     Dosage: UNK, MONTHLY (QM)
     Route: 058
     Dates: start: 20230916, end: 20240807
  2. SPIRONOLACTONE [Concomitant]
     Active Substance: SPIRONOLACTONE
     Indication: Hypertension
     Dosage: 50 MILLIGRAM, 2X/DAY (BID)
     Route: 048
     Dates: end: 20240718
  3. LERCANIDIPINE ORION [Concomitant]
     Indication: Hypertension
     Dosage: 10 MILLIGRAM, ONCE DAILY (QD)
     Route: 048
     Dates: start: 202408
  4. Hydrochlorothiazide bluefish [Concomitant]
     Indication: Hypertension
     Dosage: 25 MILLIGRAM, ONCE DAILY (QD)
     Route: 048
     Dates: end: 20240718
  5. Bisoprolol 2care4 [Concomitant]
     Indication: Hypertension
     Dosage: 1.25 MILLIGRAM, ONCE DAILY (QD)
     Route: 048
     Dates: start: 202408
  6. CALCIUM CARBONATE\CHOLECALCIFEROL [Concomitant]
     Active Substance: CALCIUM CARBONATE\CHOLECALCIFEROL
     Indication: Osteoporosis
     Dosage: 500 MILLIGRAM, 2X/DAY (BID)
     Route: 048
     Dates: start: 1994

REACTIONS (5)
  - Appendicectomy [Recovered/Resolved]
  - Appendicitis [Recovered/Resolved]
  - Fatigue [Recovered/Resolved]
  - Bone pain [Recovered/Resolved]
  - Product temperature excursion issue [Unknown]

NARRATIVE: CASE EVENT DATE: 20240718
